FAERS Safety Report 12317679 (Version 1)
Quarter: 2016Q2

REPORT INFORMATION
  Report Type: Spontaneous
  Country: US (occurrence: None)
  Receive Date: 20160428
  Receipt Date: 20160428
  Transmission Date: 20160815
  Serious: No
  Sender: FDA-Public Use
  Company Number: None

PATIENT
  Age: 43 Year
  Sex: Female

DRUGS (1)
  1. ESTRING [Suspect]
     Active Substance: ESTRADIOL

REACTIONS (14)
  - Cerebrovascular accident [None]
  - Weight increased [None]
  - Cardiac disorder [None]
  - Dysuria [None]
  - Nervous system disorder [None]
  - Blindness [None]
  - Abdominal distension [None]
  - Amnesia [None]
  - Benign neoplasm [None]
  - Breast enlargement [None]
  - Thrombosis [None]
  - Syncope [None]
  - Dysphonia [None]
  - Constipation [None]
